FAERS Safety Report 7549947-8 (Version None)
Quarter: 2011Q2

REPORT INFORMATION
  Report Type: 
  Country: None (occurrence: None)
  Receive Date: 20110615
  Receipt Date: 20110531
  Transmission Date: 20111010
  Serious: Yes (Other)
  Sender: FDA-Public Use
  Company Number: TR-WATSON-2011-08031

PATIENT
  Age: 43 Year
  Sex: Female

DRUGS (4)
  1. CYCLOPHOSPHAMIDE [Suspect]
     Indication: BREAST CANCER
     Dosage: UNK
  2. FLUOROURACIL [Suspect]
     Indication: BREAST CANCER
     Dosage: UNK
  3. DOCETAXEL [Suspect]
     Indication: BREAST CANCER
     Dosage: UNK
  4. DOXORUBICIN HCL [Suspect]
     Indication: BREAST CANCER
     Dosage: UNK

REACTIONS (2)
  - HERPES ZOSTER [None]
  - NEUTROPENIA [None]
